FAERS Safety Report 9073387 (Version 2)
Quarter: 2013Q1

REPORT INFORMATION
  Report Type: Report from Study
  Country: US (occurrence: US)
  Receive Date: 20130216
  Receipt Date: 20130315
  Transmission Date: 20140127
  Serious: Yes (Other)
  Sender: FDA-Public Use
  Company Number: US-US-EMD SERONO, INC.-7193179

PATIENT
  Age: 59 None
  Sex: Female

DRUGS (3)
  1. REBIF [Suspect]
     Indication: MULTIPLE SCLEROSIS
     Route: 058
     Dates: start: 20090730
  2. TYLENOL [Concomitant]
     Indication: PREMEDICATION
  3. BACLOFEN [Concomitant]
     Indication: PRODUCT USED FOR UNKNOWN INDICATION

REACTIONS (11)
  - Nephropathy [Unknown]
  - Anxiety [Unknown]
  - Lipids increased [Unknown]
  - Abasia [Unknown]
  - Malaise [Unknown]
  - Multiple sclerosis [Unknown]
  - Depression [Unknown]
  - Injection site erythema [Unknown]
  - Injection site nodule [Unknown]
  - Injection site pain [Not Recovered/Not Resolved]
  - Influenza like illness [Not Recovered/Not Resolved]
